FAERS Safety Report 7731969-5 (Version None)
Quarter: 2011Q3

REPORT INFORMATION
  Report Type: 
  Country: None (occurrence: None)
  Receive Date: 20110906
  Receipt Date: 20110719
  Transmission Date: 20111222
  Serious: No
  Sender: FDA-Public Use
  Company Number: US-AMGEN-USASP2011036700

PATIENT
  Sex: Female

DRUGS (10)
  1. VITAMIN C                          /00008001/ [Concomitant]
  2. VITAMIN D [Concomitant]
  3. CALCIUM CARBONATE [Concomitant]
  4. CORTICOSTEROIDS [Concomitant]
  5. PROLIA [Suspect]
     Indication: OSTEOPOROSIS POSTMENOPAUSAL
     Dosage: UNK UNK, Q6MO
     Dates: start: 20110101
  6. B COMPLEX                          /00212701/ [Concomitant]
  7. LIPITOR [Concomitant]
  8. LUTEIN                             /01638501/ [Concomitant]
  9. MULTIVITAMIN                       /00097801/ [Concomitant]
  10. GLUCOSAMINE + CHONDROITIN          /01430901/ [Concomitant]

REACTIONS (3)
  - URTICARIA [None]
  - FATIGUE [None]
  - MENISCUS LESION [None]
